FAERS Safety Report 5426055-3 (Version None)
Quarter: 2007Q3

REPORT INFORMATION
  Report Type: 
  Country: None (occurrence: None)
  Receive Date: 20070824
  Receipt Date: 20070824
  Transmission Date: 20080115
  Serious: Yes (Hospitalization)
  Sender: FDA-Public Use
  Company Number: None

PATIENT
  Sex: Female
  Weight: 54.5 kg

DRUGS (3)
  1. CARBOPLATIN [Suspect]
     Dosage: 738 MG
  2. TAXOTERE [Suspect]
     Dosage: 118 MG
  3. TAXOL [Suspect]
     Dosage: 94 MG

REACTIONS (5)
  - ADHESIOLYSIS [None]
  - FAILURE TO THRIVE [None]
  - NAUSEA [None]
  - SMALL INTESTINAL OBSTRUCTION [None]
  - VOMITING [None]
